APPROVED DRUG PRODUCT: MEPERIDINE HYDROCHLORIDE PRESERVATIVE FREE
Active Ingredient: MEPERIDINE HYDROCHLORIDE
Strength: 10MG/ML
Dosage Form/Route: INJECTABLE;INJECTION
Application: A088432 | Product #001
Applicant: ICU MEDICAL INC
Approved: Aug 16, 1984 | RLD: Yes | RS: No | Type: DISCN